FAERS Safety Report 4652884-X (Version None)
Quarter: 2005Q2

REPORT INFORMATION
  Report Type: 
  Country: None (occurrence: None)
  Receive Date: 20050502
  Receipt Date: 20050422
  Transmission Date: 20051028
  Serious: Yes (Life-Threatening)
  Sender: FDA-Public Use
  Company Number: 2005PK00161

PATIENT
  Age: 39 Year
  Sex: Male

DRUGS (3)
  1. PROPOFOL [Suspect]
     Indication: ANAESTHESIA
     Dosage: 200 MG DAILY IVD
     Dates: start: 20041115
  2. ESMERON [Suspect]
     Dosage: 40 MG DAILY IV
     Route: 042
     Dates: start: 20041115
  3. FENTANYL CITRATE [Suspect]
     Dosage: 0.2 MG DAILY IV
     Route: 042
     Dates: start: 20041115

REACTIONS (7)
  - BRONCHOSPASM [None]
  - CHEST DISCOMFORT [None]
  - DRUG HYPERSENSITIVITY [None]
  - HYPOXIA [None]
  - PNEUMOTHORAX [None]
  - SKIN DISCOLOURATION [None]
  - TACHYCARDIA [None]
